FAERS Safety Report 6816457-2 (Version None)
Quarter: 2010Q2

REPORT INFORMATION
  Report Type: 
  Country: None (occurrence: None)
  Receive Date: 20100630
  Receipt Date: 20100615
  Transmission Date: 20101027
  Serious: Yes (Other)
  Sender: FDA-Public Use
  Company Number: 2010060047

PATIENT
  Age: 43 Year
  Sex: Female
  Weight: 56.246 kg

DRUGS (7)
  1. CARISOPRODOL [Suspect]
     Indication: PAIN
     Dosage: (350 MG,Q 6 HR AS NEEDED), ORAL
     Route: 048
     Dates: start: 20100521, end: 20100523
  2. VALIUM [Concomitant]
  3. VICODIN (HYDROCODONE, ACETAMINPHEN) [Concomitant]
  4. INSULIN (INSULIN) [Concomitant]
  5. PERCOCET [Concomitant]
  6. OXYCODONE HCL [Concomitant]
  7. SYNTHROID [Concomitant]

REACTIONS (2)
  - BLOOD GLUCOSE INCREASED [None]
  - DRUG TOXICITY [None]
